FAERS Safety Report 10901199 (Version 1)
Quarter: 2015Q1

REPORT INFORMATION
  Report Type: Spontaneous
  Country: DE (occurrence: DE)
  Receive Date: 20150310
  Receipt Date: 20150310
  Transmission Date: 20150721
  Serious: Yes (Other)
  Sender: FDA-Public Use
  Company Number: DE-MYLANLABS-2015M1006154

PATIENT

DRUGS (1)
  1. VALSARTAN DURA 80 MG FILMTABLETTEN [Suspect]
     Active Substance: VALSARTAN
     Indication: HYPERTENSION
     Dosage: 80 MG, BID (MORNING/ EVENING)
     Route: 048

REACTIONS (2)
  - Pruritus [None]
  - Abscess [Not Recovered/Not Resolved]
